FAERS Safety Report 9276910 (Version 1)
Quarter: 2013Q2

REPORT INFORMATION
  Report Type: Spontaneous
  Country: US (occurrence: US)
  Receive Date: 20130507
  Receipt Date: 20130507
  Transmission Date: 20140414
  Serious: No
  Sender: FDA-Public Use
  Company Number: US-ALEXION-A201300287

PATIENT
  Age: 13 Year
  Sex: Male
  Weight: 51.25 kg

DRUGS (15)
  1. SOLIRIS 300MG [Suspect]
     Indication: HAEMOLYTIC URAEMIC SYNDROME
     Dosage: 900 MG, SINGLE
     Route: 042
     Dates: start: 20110823, end: 20110823
  2. SOLIRIS 300MG [Suspect]
     Dosage: 900 MG, SINGLE
     Route: 042
     Dates: start: 20110830, end: 20110830
  3. SOLIRIS 300MG [Suspect]
     Dosage: 600 MG, QW
     Route: 042
     Dates: start: 20110901, end: 20110927
  4. SOLIRIS 300MG [Suspect]
     Dosage: 900 MG, Q2W
     Route: 042
     Dates: start: 20110927, end: 20111222
  5. SOLIRIS 300MG [Suspect]
     Dosage: 1200 MG, Q2W
     Route: 042
     Dates: start: 20111222
  6. TACROLIMUS [Concomitant]
     Indication: PROPHYLAXIS AGAINST TRANSPLANT REJECTION
     Dosage: 2.5 MG, BID
     Route: 048
     Dates: start: 201109
  7. AMLODIPINE [Concomitant]
     Indication: HYPERTENSION
     Dosage: 5 MG, BID
     Route: 048
     Dates: start: 201108
  8. PENICILLIN VK [Concomitant]
     Indication: INFECTION PROPHYLAXIS
     Dosage: 250 MG, BID
     Dates: start: 20110823
  9. CELLCEPT [Concomitant]
     Indication: PROPHYLAXIS AGAINST TRANSPLANT REJECTION
     Dosage: 140 MG, BID
     Route: 048
     Dates: start: 201108
  10. ZYRTEC [Concomitant]
     Indication: MULTIPLE ALLERGIES
     Dosage: 10 ML QHS
     Route: 048
  11. PREDNISONE [Concomitant]
     Indication: PROPHYLAXIS AGAINST TRANSPLANT REJECTION
     Dosage: 5 MG, QD
     Route: 048
     Dates: start: 201108
  12. FLONASE [Concomitant]
     Indication: MULTIPLE ALLERGIES
     Dosage: 1 DF, 1 SPRAY EACH NOSTRIL BID
  13. TRIMETHOPRIM SULFA [Concomitant]
     Indication: INFECTION PROPHYLAXIS
     Dosage: 1 TABLET 80/400 AT BEDTIME QD
     Route: 048
     Dates: start: 201108
  14. MULTIVITAMIN [Concomitant]
     Dosage: UNK, QD
  15. LABETALOL [Concomitant]
     Indication: HYPERTENSION
     Dosage: 200 MG, TID
     Dates: start: 201108

REACTIONS (3)
  - Weight increased [Recovering/Resolving]
  - Blood pressure increased [Recovering/Resolving]
  - Unevaluable event [Unknown]
